FAERS Safety Report 25699414 (Version 1)
Quarter: 2025Q3

REPORT INFORMATION
  Report Type: Spontaneous
  Country: EU (occurrence: EU)
  Receive Date: 20250819
  Receipt Date: 20250819
  Transmission Date: 20251021
  Serious: Yes (Hospitalization, Other)
  Sender: RANBAXY
  Company Number: EU-SUN PHARMACEUTICAL INDUSTRIES LTD-2025RR-522057

PATIENT
  Age: 77 Year
  Sex: Female

DRUGS (12)
  1. ESOMEPRAZOLE [Suspect]
     Active Substance: ESOMEPRAZOLE
     Indication: Prophylaxis
     Route: 040
     Dates: start: 20241231, end: 20250107
  2. LEVOFLOXACIN [Suspect]
     Active Substance: LEVOFLOXACIN
     Indication: Infection
     Dosage: 500 MILLIGRAM, DAILY
     Route: 048
     Dates: start: 20241215, end: 20241222
  3. PHENYTOIN SODIUM [Suspect]
     Active Substance: PHENYTOIN SODIUM
     Indication: Generalised tonic-clonic seizure
     Route: 040
     Dates: start: 20241230, end: 20250102
  4. PHENYTOIN SODIUM [Suspect]
     Active Substance: PHENYTOIN SODIUM
     Route: 065
     Dates: start: 20250102, end: 20250110
  5. HALOPERIDOL [Suspect]
     Active Substance: HALOPERIDOL
     Indication: Agitation
     Route: 030
     Dates: start: 20241229, end: 20250107
  6. VALPROIC ACID [Suspect]
     Active Substance: VALPROIC ACID
     Indication: Craniocerebral injury
     Dosage: 600 MILLIGRAM, 1 DOSE
     Route: 040
     Dates: start: 20250103, end: 20250103
  7. RISPERIDONE [Suspect]
     Active Substance: RISPERIDONE
     Indication: Craniocerebral injury
     Route: 048
     Dates: start: 20250105, end: 20250107
  8. CLONAZEPAM [Suspect]
     Active Substance: CLONAZEPAM
     Indication: Agitation
     Route: 040
     Dates: start: 20250106, end: 20250107
  9. BETAHISTINE [Suspect]
     Active Substance: BETAHISTINE
     Indication: Vertigo
     Dosage: 8 MILLIGRAM, DAILY
     Route: 048
     Dates: start: 20241218, end: 20241224
  10. MIRTAZAPINE [Concomitant]
     Active Substance: MIRTAZAPINE
     Indication: Product used for unknown indication
     Route: 065
     Dates: start: 20250101
  11. QUETIAPINE [Concomitant]
     Active Substance: QUETIAPINE
     Indication: Agitation
     Dosage: 25 MILLIGRAM, DAILY
     Route: 048
     Dates: start: 20250101, end: 20250117
  12. LEVETIRACETAM [Concomitant]
     Active Substance: LEVETIRACETAM
     Indication: Craniocerebral injury
     Route: 040
     Dates: start: 20241229

REACTIONS (1)
  - Toxic skin eruption [Recovered/Resolved]

NARRATIVE: CASE EVENT DATE: 20250108
